FAERS Safety Report 10330696 (Version 1)
Quarter: 2014Q3

REPORT INFORMATION
  Report Type: Spontaneous
  Country: US (occurrence: None)
  Receive Date: 20140718
  Receipt Date: 20140718
  Transmission Date: 20150326
  Serious: No
  Sender: FDA-Public Use
  Company Number: None

PATIENT
  Age: 29 Year
  Sex: Female
  Weight: 61.24 kg

DRUGS (1)
  1. NEXPLANON [Suspect]
     Active Substance: ETONOGESTREL
     Dates: start: 20131003, end: 20140716

REACTIONS (14)
  - Crying [None]
  - Irritability [None]
  - Amnesia [None]
  - Dysphagia [None]
  - Nausea [None]
  - Bipolar disorder [None]
  - Sensory disturbance [None]
  - Migraine [None]
  - Diarrhoea [None]
  - Insomnia [None]
  - Anxiety disorder [None]
  - Fatigue [None]
  - Visual field defect [None]
  - Dyspnoea [None]

NARRATIVE: CASE EVENT DATE: 20140716
